FAERS Safety Report 13683074 (Version 1)
Quarter: 2017Q2

REPORT INFORMATION
  Report Type: Report from Study
  Country: US (occurrence: US)
  Receive Date: 20170623
  Receipt Date: 20170623
  Transmission Date: 20170830
  Serious: Yes (Other)
  Sender: FDA-Public Use
  Company Number: US-BAXTER-2017BAX026212

PATIENT
  Sex: Male

DRUGS (2)
  1. 3% SODIUM CHLORIDE INJECTION [Suspect]
     Active Substance: SODIUM CHLORIDE
     Indication: CEREBRAL OEDEMA MANAGEMENT
     Dosage: (500 ML BAGS) FOR ATLEAST 12 HOURS
     Route: 041
  2. 3% SODIUM CHLORIDE INJECTION [Suspect]
     Active Substance: SODIUM CHLORIDE
     Indication: OFF LABEL USE

REACTIONS (1)
  - Hyperchloraemia [Unknown]
